FAERS Safety Report 6551867-2 (Version None)
Quarter: 2010Q1

REPORT INFORMATION
  Report Type: 
  Country: None (occurrence: None)
  Receive Date: 20100120
  Receipt Date: 20100107
  Transmission Date: 20100710
  Serious: Yes (Other)
  Sender: FDA-Public Use
  Company Number: 1000011255

PATIENT
  Age: 34 Year
  Sex: Male

DRUGS (4)
  1. ESCITALOPRAM [Suspect]
     Indication: ANXIETY
     Dosage: ORAL
     Route: 048
     Dates: start: 20090101
  2. ESCITALOPRAM [Suspect]
     Indication: DEPRESSION
     Dosage: ORAL
     Route: 048
     Dates: start: 20090101
  3. PROPRANOLOL [Concomitant]
  4. TEMESTA [Concomitant]

REACTIONS (2)
  - PANCREATIC CALCIFICATION [None]
  - PANCREATITIS ACUTE [None]
